FAERS Safety Report 13813475 (Version 1)
Quarter: 2017Q3

REPORT INFORMATION
  Report Type: Spontaneous
  Country: FR (occurrence: FR)
  Receive Date: 20170730
  Receipt Date: 20170730
  Transmission Date: 20171127
  Serious: Yes (Other)
  Sender: FDA-Public Use
  Company Number: PHHY2017FR108098

PATIENT
  Age: 58 Year
  Sex: Female

DRUGS (6)
  1. ZOPHREN [Suspect]
     Active Substance: ONDANSETRON
     Indication: COLON CANCER
     Dosage: 8 MG, UNK
     Route: 042
     Dates: start: 20151221, end: 20170201
  2. METHYLPREDNISOLONE. [Concomitant]
     Active Substance: METHYLPREDNISOLONE
     Indication: COLON CANCER
     Dosage: 60 MG, UNK
     Route: 042
     Dates: start: 20151221, end: 20170201
  3. OXALIPLATIN. [Concomitant]
     Active Substance: OXALIPLATIN
     Indication: PRODUCT USED FOR UNKNOWN INDICATION
     Dosage: UNK
     Route: 065
     Dates: start: 201512
  4. FOLINIC ACID [Concomitant]
     Active Substance: LEUCOVORIN
     Indication: PRODUCT USED FOR UNKNOWN INDICATION
     Route: 065
  5. AVASTIN [Suspect]
     Active Substance: BEVACIZUMAB
     Indication: COLON CANCER
     Dosage: 220 MG, UNK
     Route: 042
     Dates: start: 20151221, end: 20170201
  6. LEVOFOLINATE CALCIUM [Suspect]
     Active Substance: LEVOLEUCOVORIN CALCIUM
     Indication: COLON CANCER
     Dosage: 200 MG, UNK
     Route: 042
     Dates: start: 20151206, end: 20170201

REACTIONS (5)
  - Back pain [Recovered/Resolved]
  - Hyperhidrosis [Recovered/Resolved]
  - Vomiting [Recovered/Resolved]
  - Hypersensitivity [Recovered/Resolved]
  - Abdominal pain [Recovered/Resolved]

NARRATIVE: CASE EVENT DATE: 20170103
